FAERS Safety Report 6336820-6 (Version None)
Quarter: 2009Q3

REPORT INFORMATION
  Report Type: 
  Country: None (occurrence: None)
  Receive Date: 20090831
  Receipt Date: 20090831
  Transmission Date: 20100115
  Serious: Yes (Hospitalization)
  Sender: FDA-Public Use
  Company Number: None

PATIENT
  Sex: Female
  Weight: 71.6683 kg

DRUGS (1)
  1. TOPAMAX [Suspect]
     Indication: MIGRAINE
     Dosage: 25MG 1X DAY PO
     Route: 048

REACTIONS (4)
  - DRUG HYPERSENSITIVITY [None]
  - MYOCLONUS [None]
  - STRESS [None]
  - UNEVALUABLE EVENT [None]
